FAERS Safety Report 6130670-1 (Version None)
Quarter: 2009Q1

REPORT INFORMATION
  Report Type: 
  Country: None (occurrence: None)
  Receive Date: 20090325
  Receipt Date: 20090313
  Transmission Date: 20090719
  Serious: Yes (Death)
  Sender: FDA-Public Use
  Company Number: US-JNJFOC-20090303275

PATIENT
  Age: 12 Year
  Sex: Female

DRUGS (2)
  1. TYLENOL [Suspect]
     Indication: OROPHARYNGEAL PAIN
  2. TYLENOL [Suspect]
     Indication: HEADACHE

REACTIONS (2)
  - CONVULSION [None]
  - LOSS OF CONSCIOUSNESS [None]
